FAERS Safety Report 21971750 (Version 1)
Quarter: 2023Q1

REPORT INFORMATION
  Report Type: Spontaneous
  Country: US (occurrence: US)
  Receive Date: 20230209
  Receipt Date: 20230209
  Transmission Date: 20230417
  Serious: No
  Sender: FDA-Public Use
  Company Number: US-VERICEL-US-VCEL-22-000609

PATIENT
  Sex: Male

DRUGS (1)
  1. MACI [Suspect]
     Active Substance: AUTOLOGOUS CULTURED CHONDROCYTES\SUS SCROFA COLLAGEN
     Indication: Product used for unknown indication
     Dosage: UNK UNK, SINGLE
     Route: 065
     Dates: start: 20220620, end: 20220620

REACTIONS (1)
  - Inflammation [Not Recovered/Not Resolved]

NARRATIVE: CASE EVENT DATE: 20220801
